FAERS Safety Report 7384289-5 (Version None)
Quarter: 2011Q1

REPORT INFORMATION
  Report Type: 
  Country: None (occurrence: None)
  Receive Date: 20110330
  Receipt Date: 20110322
  Transmission Date: 20110831
  Serious: Yes (Hospitalization, Disabling)
  Sender: FDA-Public Use
  Company Number: US-MERCK-1001USA03436

PATIENT
  Age: 79 Year
  Sex: Female

DRUGS (3)
  1. FOSAMAX [Suspect]
     Indication: OSTEOPOROSIS
     Route: 048
     Dates: start: 19971221, end: 20001203
  2. FOSAMAX [Suspect]
     Route: 048
     Dates: start: 20010127, end: 20071208
  3. FOSAMAX [Suspect]
     Route: 048
     Dates: start: 20080806

REACTIONS (10)
  - LOW TURNOVER OSTEOPATHY [None]
  - TENDINOUS CONTRACTURE [None]
  - DYSLIPIDAEMIA [None]
  - HYPERTENSION [None]
  - PERONEAL NERVE PALSY [None]
  - OSTEOPOROSIS [None]
  - FEMUR FRACTURE [None]
  - NEUROPATHY PERIPHERAL [None]
  - FALL [None]
  - STRESS FRACTURE [None]
